FAERS Safety Report 24071886 (Version 1)
Quarter: 2024Q3

REPORT INFORMATION
  Report Type: Report from Study
  Country: DE (occurrence: DE)
  Receive Date: 20240710
  Receipt Date: 20240710
  Transmission Date: 20241017
  Serious: No
  Sender: ROCHE
  Company Number: DE-ROCHE-3314065

PATIENT
  Age: 17 Year
  Sex: Male
  Weight: 70.5 kg

DRUGS (2)
  1. EVRYSDI [Suspect]
     Active Substance: RISDIPLAM
     Indication: Spinal muscular atrophy
     Dosage: LAST DOSE RECEIVED ON 17/JAN/2023, 25/MAY/2023, 25/MAR/2024
     Route: 048
     Dates: start: 20211030
  2. CHOLECALCIFEROL [Concomitant]
     Active Substance: CHOLECALCIFEROL
     Dates: start: 2014

REACTIONS (2)
  - Respiratory tract infection [Recovered/Resolved]
  - Nasopharyngitis [Recovered/Resolved]

NARRATIVE: CASE EVENT DATE: 20220801
